FAERS Safety Report 5902162-3 (Version None)
Quarter: 2008Q3

REPORT INFORMATION
  Report Type: 
  Country: None (occurrence: None)
  Receive Date: 20080929
  Receipt Date: 20080917
  Transmission Date: 20090109
  Serious: Yes (Other)
  Sender: FDA-Public Use
  Company Number: US-PFIZER INC-2008079504

PATIENT
  Sex: Female
  Weight: 127.3 kg

DRUGS (1)
  1. CHANTIX [Suspect]
     Indication: SMOKING CESSATION THERAPY
     Route: 048
     Dates: start: 20080101, end: 20080501

REACTIONS (5)
  - ANGIOPATHY [None]
  - BRONCHITIS [None]
  - INFLUENZA [None]
  - NASOPHARYNGITIS [None]
  - SWELLING [None]
